FAERS Safety Report 8694570 (Version 2)
Quarter: 2013Q4

REPORT INFORMATION
  Report Type: Report from Study
  Country: CO (occurrence: CO)
  Receive Date: 20120731
  Receipt Date: 20131031
  Transmission Date: 20140711
  Serious: Yes (Life-Threatening)
  Sender: FDA-Public Use
  Company Number: CO-009507513-1109USA03330

PATIENT
  Age: 72 Year
  Sex: Female
  Weight: 76.3 kg

DRUGS (9)
  1. EZETIMIBE (+) SIMVASTATIN [Suspect]
     Indication: ACUTE CORONARY SYNDROME
     Dosage: 10-40
     Route: 048
     Dates: start: 20091008
  2. PLACEBO [Suspect]
     Indication: ACUTE CORONARY SYNDROME
     Dosage: 40 MG, QD
     Route: 048
     Dates: start: 20091008
  3. PLACEBO [Suspect]
     Indication: ACUTE CORONARY SYNDROME
     Dosage: 40 MG, QD
     Route: 048
     Dates: start: 20091008
  4. METFORMIN [Concomitant]
     Route: 048
     Dates: start: 20050715
  5. AMLODIPINE [Concomitant]
     Route: 048
     Dates: start: 20070715
  6. INSULIN [Concomitant]
     Route: 048
     Dates: start: 20101107
  7. METOPROLOL [Concomitant]
     Route: 048
     Dates: start: 20010715
  8. LOSARTAN POTASSIUM [Concomitant]
     Route: 048
     Dates: start: 20100627
  9. ASPIRIN [Concomitant]
     Route: 048
     Dates: start: 20010715

REACTIONS (1)
  - Invasive lobular breast carcinoma [Recovered/Resolved]
